FAERS Safety Report 4329764-2 (Version None)
Quarter: 2004Q2

REPORT INFORMATION
  Report Type: 
  Country: None (occurrence: None)
  Receive Date: 20040401
  Receipt Date: 20040325
  Transmission Date: 20050107
  Serious: Yes (Hospitalization)
  Sender: FDA-Public Use
  Company Number: FR-GLAXOSMITHKLINE-B0328135A

PATIENT
  Age: 24 Year
  Sex: Female

DRUGS (7)
  1. ZINNAT [Suspect]
     Indication: ACUTE TONSILLITIS
     Dosage: 125MG PER DAY
     Route: 048
     Dates: start: 20030114, end: 20030114
  2. MUXOL [Suspect]
     Indication: ACUTE TONSILLITIS
     Dosage: 1UNIT PER DAY
     Route: 048
     Dates: start: 20030114, end: 20030114
  3. NUREFLEX [Suspect]
     Indication: ACUTE TONSILLITIS
     Dosage: 1UNIT PER DAY
     Route: 048
     Dates: start: 20030114, end: 20030114
  4. ELUDRIL COLLUTOIRE [Suspect]
     Indication: ACUTE TONSILLITIS
     Dosage: 1UNIT PER DAY
     Route: 048
     Dates: start: 20030114, end: 20030114
  5. FLIXOTIDE [Concomitant]
     Indication: ASTHMA
     Route: 055
  6. SEREVENT [Concomitant]
     Indication: ASTHMA
     Route: 055
  7. TRINORDIOL [Concomitant]

REACTIONS (4)
  - ANGIONEUROTIC OEDEMA [None]
  - ERYTHEMA [None]
  - LOCALISED OEDEMA [None]
  - PRURITUS [None]
